FAERS Safety Report 4788691-7 (Version None)
Quarter: 2005Q4

REPORT INFORMATION
  Report Type: 
  Country: None (occurrence: None)
  Receive Date: 20051003
  Receipt Date: 20050526
  Transmission Date: 20060501
  Serious: Yes (Other)
  Sender: FDA-Public Use
  Company Number: 142218USA

PATIENT
  Age: 30 Year
  Sex: Male

DRUGS (2)
  1. SULFAMETHOXAZOLE + TRIMETHOPRIM [Suspect]
     Indication: ACNE
     Dates: start: 20050304, end: 20050405
  2. SULFAMETHOXAZOLE + TRIMETHOPRIM [Suspect]
     Indication: FOLLICULITIS
     Dates: start: 20050304, end: 20050405

REACTIONS (9)
  - BURNING SENSATION [None]
  - DRY SKIN [None]
  - ERYTHEMA [None]
  - FACE OEDEMA [None]
  - HEADACHE [None]
  - LIVER FUNCTION TEST ABNORMAL [None]
  - MALAISE [None]
  - PYREXIA [None]
  - RASH [None]
